FAERS Safety Report 8576159-1 (Version None)
Quarter: 2012Q3

REPORT INFORMATION
  Report Type: 
  Country: None (occurrence: None)
  Receive Date: 20120807
  Receipt Date: 20120801
  Transmission Date: 20120928
  Serious: Yes (Other)
  Sender: FDA-Public Use
  Company Number: US-JNJFOC-20120708305

PATIENT
  Age: 60 Year
  Sex: Female

DRUGS (2)
  1. STELARA [Suspect]
     Route: 058
  2. STELARA [Suspect]
     Indication: PRODUCT USED FOR UNKNOWN INDICATION
     Route: 058

REACTIONS (1)
  - BRONCHOSPASM [None]
